FAERS Safety Report 9554405 (Version 3)
Quarter: 2013Q4

REPORT INFORMATION
  Report Type: Report from Study
  Country: US (occurrence: US)
  Receive Date: 20130925
  Receipt Date: 20131001
  Transmission Date: 20140711
  Serious: Yes (Death, Hospitalization)
  Sender: FDA-Public Use
  Company Number: US-ACTELION-A-NJ2013-87964

PATIENT
  Age: 55 Year
  Sex: Male

DRUGS (22)
  1. VENTAVIS [Suspect]
     Indication: PULMONARY HYPERTENSION
     Dosage: 20 MCG EVERY 2 HOURS FROM 8 AM TO 8 PM
     Route: 055
     Dates: end: 20130919
  2. SILDENAFIL [Concomitant]
     Dosage: 40 MG, UNK
  3. LETAIRIS [Concomitant]
  4. ADVAIR [Concomitant]
  5. SPIRIVA [Concomitant]
  6. METOPROLOL [Concomitant]
     Dosage: 50 MG, UNK
  7. PREDNISONE [Concomitant]
     Dosage: 40 MG, QAM
     Route: 048
  8. LANTUS [Concomitant]
     Dosage: 35 U, QAM
  9. LISPRO INSULIN [Concomitant]
     Dosage: 13 U, UNK
  10. METFORMIN [Concomitant]
     Dosage: 1000 MG, BID
  11. GLYBURIDE [Concomitant]
  12. SPIRONOLACTONE [Concomitant]
     Dosage: 25 MG, UNK
  13. COLACE [Concomitant]
     Dosage: 100 MG, BID
  14. LOVASTATIN [Concomitant]
     Dosage: 40 MG, QD
  15. KLOR-CON [Concomitant]
     Dosage: 30 MEQ, BID
  16. LORAZEPAM [Concomitant]
     Dosage: 1 MG, BID
  17. ZOFRAN [Concomitant]
     Dosage: 8 MG, PRN
  18. IRON SULFATE [Concomitant]
     Dosage: 325 MG, UNK
  19. OMEPRAZOLE [Concomitant]
     Dosage: 40 MG, BID
  20. ASPIRIN [Concomitant]
     Dosage: 81 MG, QD
  21. TAMSULOSIN [Concomitant]
     Dosage: 0.4 MG, QD
  22. FUROSEMIDE [Concomitant]
     Dosage: 240 MG, TID

REACTIONS (11)
  - Death [Fatal]
  - Chronic obstructive pulmonary disease [Unknown]
  - Dyspnoea [Unknown]
  - Hypoxia [Unknown]
  - Oxygen saturation decreased [Unknown]
  - Troponin increased [Unknown]
  - Electrocardiogram QT prolonged [Unknown]
  - Chest pain [Unknown]
  - Fluid overload [Unknown]
  - Oedema peripheral [Unknown]
  - Crepitations [Unknown]
